FAERS Safety Report 10253382 (Version 1)
Quarter: 2014Q2

REPORT INFORMATION
  Report Type: Spontaneous
  Country: US (occurrence: US)
  Receive Date: 20140623
  Receipt Date: 20140623
  Transmission Date: 20141212
  Serious: Yes (Death, Life-Threatening, Disabling, Other)
  Sender: FDA-Public Use
  Company Number: US-009507513-1406USA008544

PATIENT
  Sex: Female

DRUGS (1)
  1. IMPLANON [Suspect]
     Indication: CONTRACEPTION
     Dosage: UNK
     Route: 059
     Dates: start: 2011

REACTIONS (12)
  - Completed suicide [Fatal]
  - Social problem [Unknown]
  - Depression [Unknown]
  - Anxiety [Unknown]
  - Panic attack [Unknown]
  - Vaginal haemorrhage [Unknown]
  - Hot flush [Unknown]
  - Headache [Unknown]
  - Breast pain [Unknown]
  - Alopecia [Unknown]
  - Medical device complication [Unknown]
  - Alcohol problem [Unknown]
